FAERS Safety Report 19758794 (Version 2)
Quarter: 2021Q3

REPORT INFORMATION
  Report Type: Spontaneous
  Country: US (occurrence: US)
  Receive Date: 20210827
  Receipt Date: 20210907
  Transmission Date: 20211014
  Serious: Yes (Other)
  Sender: FDA-Public Use
  Company Number: US-009507513-2108USA005992

PATIENT
  Sex: Female

DRUGS (1)
  1. BELSOMRA [Suspect]
     Active Substance: SUVOREXANT
     Indication: INSOMNIA
     Dosage: 20 MILLIGRAM
     Route: 048

REACTIONS (7)
  - Urinary tract disorder [Not Recovered/Not Resolved]
  - Bladder cancer [Not Recovered/Not Resolved]
  - Stress [Not Recovered/Not Resolved]
  - Insomnia [Not Recovered/Not Resolved]
  - Product dose omission issue [Unknown]
  - Bipolar disorder [Not Recovered/Not Resolved]
  - Seizure [Not Recovered/Not Resolved]

NARRATIVE: CASE EVENT DATE: 2021
